FAERS Safety Report 19599726 (Version 1)
Quarter: 2021Q3

REPORT INFORMATION
  Report Type: Spontaneous
  Country: US (occurrence: US)
  Receive Date: 20210722
  Receipt Date: 20210722
  Transmission Date: 20211014
  Serious: Yes (Other)
  Sender: FDA-Public Use
  Company Number: US-PFIZER INC-2021872146

PATIENT
  Age: 41 Year
  Sex: Female

DRUGS (4)
  1. XELJANZ XR [Suspect]
     Active Substance: TOFACITINIB CITRATE
     Indication: RHEUMATOID ARTHRITIS
     Dosage: UNK
  2. XELJANZ XR [Suspect]
     Active Substance: TOFACITINIB CITRATE
     Dosage: 11 MG, 1X/DAY
     Route: 048
     Dates: start: 20210701
  3. AZATHIOPRINE. [Concomitant]
     Active Substance: AZATHIOPRINE
     Dosage: 75 MG, 2X/DAY (AZATHIOPRINE 50MG TABLET (1 1/2 TABLET))
     Dates: start: 2021
  4. LEFLUNOMIDE. [Concomitant]
     Active Substance: LEFLUNOMIDE
     Dosage: 20 MG, 1X/DAY
     Dates: start: 2021

REACTIONS (7)
  - Vision blurred [Unknown]
  - Herpes zoster [Unknown]
  - Product dose omission issue [Unknown]
  - Anxiety [Unknown]
  - Breast cancer [Unknown]
  - Neuropathy peripheral [Unknown]
  - Depression [Unknown]

NARRATIVE: CASE EVENT DATE: 2020
